FAERS Safety Report 9712159 (Version 2)
Quarter: 2014Q1

REPORT INFORMATION
  Report Type: Spontaneous
  Country: US (occurrence: US)
  Receive Date: 20131126
  Receipt Date: 20140207
  Transmission Date: 20141002
  Serious: Yes (Death, Hospitalization)
  Sender: FDA-Public Use
  Company Number: US-B.I. PHARMACEUTICALS,INC./RIDGEFIELD-2013-BI-38934BP

PATIENT
  Age: 78 Year
  Sex: Female
  Weight: 58.97 kg

DRUGS (12)
  1. PRADAXA [Suspect]
     Indication: ATRIAL FIBRILLATION
     Dosage: 150 MG
     Dates: start: 20111102, end: 20120301
  2. PRADAXA [Suspect]
     Indication: THROMBOSIS PROPHYLAXIS
  3. LEVOXYL [Concomitant]
     Dates: start: 2000, end: 2012
  4. LISINOPRIL [Concomitant]
     Dates: start: 2008, end: 2012
  5. SPIRONOLACTONE [Concomitant]
  6. LASIX [Concomitant]
     Dates: start: 2009
  7. DIGOXIN [Concomitant]
  8. AMITRIPTYLINE [Concomitant]
     Dates: start: 2007, end: 2012
  9. DIGOXIN [Concomitant]
  10. ZOLPIDEM [Concomitant]
     Dates: start: 2011, end: 2012
  11. CALCIUM [Concomitant]
  12. CARVEDILOL [Concomitant]
     Dates: start: 2007, end: 2012

REACTIONS (5)
  - Gastrointestinal haemorrhage [Fatal]
  - Subarachnoid haemorrhage [Fatal]
  - Intraventricular haemorrhage [Fatal]
  - Haemorrhage [Fatal]
  - Fall [Unknown]
